FAERS Safety Report 5901160-3 (Version None)
Quarter: 2008Q3

REPORT INFORMATION
  Report Type: 
  Country: None (occurrence: None)
  Receive Date: 20080929
  Receipt Date: 20080924
  Transmission Date: 20090109
  Serious: Yes (Disabling)
  Sender: FDA-Public Use
  Company Number: GB-ROCHE-587791

PATIENT
  Age: 80 Year
  Sex: Female
  Weight: 70 kg

DRUGS (11)
  1. MYCOPHENOLATE MOFETIL [Suspect]
     Route: 048
     Dates: start: 20070426
  2. AZATHIOPRINE [Suspect]
     Route: 048
     Dates: start: 20070215, end: 20070426
  3. CYCLOPHOSPHAMIDE [Suspect]
     Route: 048
     Dates: start: 20061024, end: 20070215
  4. ADCAL D3 [Concomitant]
  5. ALENDRONIC ACID [Concomitant]
  6. BISOPROLOL FUMARATE [Concomitant]
  7. DIGOXIN [Concomitant]
  8. FUROSEMIDE [Concomitant]
  9. OMEPRAZOLE [Concomitant]
  10. PREDNISOLONE [Concomitant]
  11. WARFARIN SODIUM [Concomitant]

REACTIONS (1)
  - MYELODYSPLASTIC SYNDROME [None]
